FAERS Safety Report 10490626 (Version 3)
Quarter: 2015Q1

REPORT INFORMATION
  Report Type: Spontaneous
  Country: US (occurrence: US)
  Receive Date: 20141002
  Receipt Date: 20150123
  Transmission Date: 20150720
  Serious: No
  Sender: FDA-Public Use
  Company Number: US-GLAXOSMITHKLINE-A0989757A

PATIENT
  Age: 69 Year
  Sex: Female

DRUGS (5)
  1. QVAR [Concomitant]
     Active Substance: BECLOMETHASONE DIPROPIONATE
  2. ADVAIR DISKUS [Suspect]
     Active Substance: FLUTICASONE PROPIONATE\SALMETEROL XINAFOATE
     Indication: ASTHMA
     Dosage: 250/50 MCG
     Route: 055
     Dates: start: 20111010
  3. INHALER [Concomitant]
     Active Substance: UNSPECIFIED INGREDIENT
  4. BLOOD PRESSURE MEDICATION [Concomitant]
     Active Substance: UNSPECIFIED INGREDIENT
  5. ADVAIR DISKUS [Suspect]
     Active Substance: FLUTICASONE PROPIONATE\SALMETEROL XINAFOATE
     Indication: ASTHMA
     Dosage: 1 PUFF(S), BID
     Route: 055

REACTIONS (6)
  - Dyspnoea exertional [Recovering/Resolving]
  - Dyspnoea [Unknown]
  - Immune system disorder [Unknown]
  - Oxygen consumption decreased [Recovering/Resolving]
  - Dry throat [Unknown]
  - Asthma exercise induced [Recovering/Resolving]

NARRATIVE: CASE EVENT DATE: 20141111
